FAERS Safety Report 5638196-6 (Version None)
Quarter: 2008Q1

REPORT INFORMATION
  Report Type: 
  Country: None (occurrence: None)
  Receive Date: 20080226
  Receipt Date: 20080212
  Transmission Date: 20080703
  Serious: Yes (Other)
  Sender: FDA-Public Use
  Company Number: CA-ELI_LILLY_AND_COMPANY-CA200802003486

PATIENT
  Sex: Male
  Weight: 92.4 kg

DRUGS (8)
  1. SOMATROPIN [Suspect]
     Indication: GROWTH HORMONE DEFICIENCY
     Dosage: 2.4 MG, UNK
     Route: 058
     Dates: start: 20020304, end: 20080121
  2. LEVOTHYROXINE SODIUM [Concomitant]
     Indication: HYPOTHYROIDISM
     Dates: start: 20020101
  3. HYDROCORTISONE [Concomitant]
     Indication: ADRENAL INSUFFICIENCY
     Dates: start: 20050515
  4. DDAVP (NEEDS NO REFRIGERATION) [Concomitant]
     Indication: DIABETES INSIPIDUS
     Dates: start: 20000417
  5. CALCIUM [Concomitant]
     Indication: BONE DEVELOPMENT ABNORMAL
     Dates: start: 20021203
  6. METFORMIN HCL [Concomitant]
     Indication: OBESITY
     Dates: start: 20050901
  7. DEXEDRINE [Concomitant]
     Indication: OBESITY
     Dates: start: 20020601
  8. ASPIRIN [Concomitant]
     Indication: VASCULITIS
     Dates: start: 20030601

REACTIONS (1)
  - ASTROCYTOMA [None]
